FAERS Safety Report 9210597 (Version 2)
Quarter: 2014Q2

REPORT INFORMATION
  Report Type: Spontaneous
  Country: US (occurrence: US)
  Receive Date: 20130404
  Receipt Date: 20140428
  Transmission Date: 20141212
  Serious: Yes (Hospitalization, Other)
  Sender: FDA-Public Use
  Company Number: US-UCBSA-082067

PATIENT
  Age: 33 Year
  Sex: Male
  Weight: 101.1 kg

DRUGS (6)
  1. VIMPAT [Suspect]
     Indication: CONVULSION
     Route: 048
  2. DEXALANT [Concomitant]
     Indication: GASTROOESOPHAGEAL REFLUX DISEASE
     Dosage: 1 TABLET PER DAY
     Route: 048
  3. ASPIRIN [Concomitant]
     Dosage: STRENGTH: 81 MG
  4. CARDIZEM [Concomitant]
  5. CYMBALTA [Concomitant]
  6. ZOCOR [Concomitant]

REACTIONS (8)
  - Arteriosclerosis coronary artery [Recovered/Resolved]
  - Palpitations [Not Recovered/Not Resolved]
  - Convulsion [Recovered/Resolved]
  - Gastroenteritis viral [Recovered/Resolved]
  - Carpal tunnel syndrome [Unknown]
  - Neuropathy peripheral [Unknown]
  - Paraesthesia [Not Recovered/Not Resolved]
  - Anxiety [Not Recovered/Not Resolved]
